FAERS Safety Report 4988171-X (Version None)
Quarter: 2006Q2

REPORT INFORMATION
  Report Type: 
  Country: None (occurrence: None)
  Receive Date: 20060425
  Receipt Date: 20060419
  Transmission Date: 20061013
  Serious: Yes (Hospitalization, Other)
  Sender: FDA-Public Use
  Company Number: 2006051232

PATIENT
  Age: 33 Year
  Sex: Male

DRUGS (1)
  1. TAHOR (ATORVASTATIN) [Suspect]
     Indication: TYPE IIA HYPERLIPIDAEMIA
     Dosage: 10 MG (PER DAY)
     Dates: end: 20060101

REACTIONS (1)
  - TENDON RUPTURE [None]
